FAERS Safety Report 9275250 (Version 1)
Quarter: 2013Q2

REPORT INFORMATION
  Report Type: Spontaneous
  Country: US (occurrence: None)
  Receive Date: 20130501
  Receipt Date: 20130501
  Transmission Date: 20140414
  Serious: Yes (Other)
  Sender: FDA-Public Use
  Company Number: None

PATIENT
  Age: 50 Year
  Sex: Female
  Weight: 64 kg

DRUGS (1)
  1. HYDROXYCHLOROQUINE [Suspect]
     Route: 048
     Dates: start: 2009, end: 200906

REACTIONS (6)
  - Headache [None]
  - Fatigue [None]
  - Flushing [None]
  - Blood pressure fluctuation [None]
  - Product substitution issue [None]
  - Therapeutic response unexpected with drug substitution [None]
